FAERS Safety Report 4748241-8 (Version None)
Quarter: 2005Q3

REPORT INFORMATION
  Report Type: 
  Country: None (occurrence: None)
  Receive Date: 20050818
  Receipt Date: 20050808
  Transmission Date: 20060218
  Serious: Yes (Other)
  Sender: FDA-Public Use
  Company Number: KR-ABBOTT-05P-090-0307744-00

PATIENT
  Age: 24 Year
  Sex: Female

DRUGS (3)
  1. CYCLOSPORINE [Suspect]
     Indication: THROMBOCYTOPENIA
     Dates: start: 20000901, end: 20030701
  2. CYCLOSPORINE [Suspect]
     Dosage: GRADUALLY INCREASED TO 200 MG PER DAY
     Dates: end: 20030701
  3. CYCLOSPORINE [Suspect]
     Dates: start: 20030101, end: 20030101

REACTIONS (2)
  - PLATELET COUNT DECREASED [None]
  - REVERSIBLE POSTERIOR LEUKOENCEPHALOPATHY SYNDROME [None]
